FAERS Safety Report 5239582-9 (Version None)
Quarter: 2007Q1

REPORT INFORMATION
  Report Type: 
  Country: None (occurrence: None)
  Receive Date: 20070216
  Receipt Date: 20070209
  Transmission Date: 20070707
  Serious: Yes (Hospitalization)
  Sender: FDA-Public Use
  Company Number: 2007AP00866

PATIENT
  Age: 18763 Day
  Sex: Male

DRUGS (3)
  1. ATACAND HCT [Suspect]
     Indication: ESSENTIAL HYPERTENSION
     Dosage: 16/12.5
     Route: 048
     Dates: start: 20061114, end: 20061121
  2. LITHIUM CARBONATE [Interacting]
     Indication: EPILEPSY
     Dosage: LONG TERM
     Route: 048
  3. PERINDOPRIL ERBUMINE [Interacting]
     Route: 048
     Dates: start: 20061027, end: 20061121

REACTIONS (4)
  - DRUG INTERACTION [None]
  - DRUG LEVEL ABOVE THERAPEUTIC [None]
  - NAUSEA [None]
  - VOMITING [None]
